FAERS Safety Report 9067774 (Version 1)
Quarter: 2013Q1

REPORT INFORMATION
  Report Type: Spontaneous
  Country: ES (occurrence: ES)
  Receive Date: 20130128
  Receipt Date: 20130128
  Transmission Date: 20140127
  Serious: Yes (Other)
  Sender: FDA-Public Use
  Company Number: ES-WATSON-2013-00797

PATIENT
  Age: 65 Year
  Sex: Male

DRUGS (2)
  1. CARBOPLATIN (WATSON LABORATORIES) [Suspect]
     Indication: LUNG ADENOCARCINOMA METASTATIC
     Dosage: UNK
     Route: 065
  2. GEMCITABINE [Suspect]
     Indication: LUNG ADENOCARCINOMA METASTATIC
     Dosage: UNK
     Route: 065

REACTIONS (1)
  - Blood disorder [Recovered/Resolved]
